FAERS Safety Report 4594596-7 (Version None)
Quarter: 2005Q1

REPORT INFORMATION
  Report Type: 
  Country: None (occurrence: None)
  Receive Date: 20050301
  Receipt Date: 20040825
  Transmission Date: 20050727
  Serious: No
  Sender: FDA-Public Use
  Company Number: US-BRISTOL-MYERS SQUIBB COMPANY-12684817

PATIENT
  Age: 51 Year
  Sex: Female

DRUGS (2)
  1. ERBITUX [Suspect]
     Indication: COLORECTAL CANCER METASTATIC
     Dosage: 1ST INFUSION/LOADING DOSE. LAST DOSE 27-SEP-04
     Route: 042
     Dates: start: 20040824, end: 20040824
  2. CPT-11 [Concomitant]
     Dosage: DOSE 225 MG, INFUSION STOPPED
     Dates: start: 20040824, end: 20040824

REACTIONS (2)
  - CHEST DISCOMFORT [None]
  - FEELING HOT [None]
